FAERS Safety Report 13255407 (Version 1)
Quarter: 2017Q1

REPORT INFORMATION
  Report Type: Spontaneous
  Country: US (occurrence: US)
  Receive Date: 20170217
  Receipt Date: 20170217
  Transmission Date: 20170428
  Serious: Yes (Hospitalization)
  Sender: FDA-Public Use
  Company Number: None

PATIENT
  Age: 82 Year
  Sex: Female
  Weight: 106 kg

DRUGS (2)
  1. RUXOLITINIB [Suspect]
     Active Substance: RUXOLITINIB
     Indication: DRUG THERAPY
     Route: 048
     Dates: start: 20161115
  2. RUXOLITINIB [Suspect]
     Active Substance: RUXOLITINIB
     Indication: DRUG THERAPY
     Route: 048
     Dates: start: 20150727, end: 20161114

REACTIONS (2)
  - Respiratory syncytial virus test positive [None]
  - Upper respiratory tract infection [None]

NARRATIVE: CASE EVENT DATE: 20161130
